FAERS Safety Report 5367703-6 (Version None)
Quarter: 2007Q2

REPORT INFORMATION
  Report Type: 
  Country: None (occurrence: None)
  Receive Date: 20070622
  Receipt Date: 20070327
  Transmission Date: 20071010
  Serious: No
  Sender: FDA-Public Use
  Company Number: US-ASTRAZENECA-2007UW06303

PATIENT
  Age: 5 Month
  Sex: Male
  Weight: 7.2 kg

DRUGS (3)
  1. PULMICORT RESPULES [Suspect]
     Indication: ASTHMA
     Route: 055
     Dates: start: 20061201
  2. PREVACID [Concomitant]
  3. XOPENEX [Concomitant]

REACTIONS (3)
  - CONSTIPATION [None]
  - DISCOMFORT [None]
  - INSOMNIA [None]
